FAERS Safety Report 15613443 (Version 13)
Quarter: 2021Q3

REPORT INFORMATION
  Report Type: Spontaneous
  Country: US (occurrence: US)
  Receive Date: 20181113
  Receipt Date: 20210701
  Transmission Date: 20211014
  Serious: Yes (Other)
  Sender: FDA-Public Use
  Company Number: US-PFIZER INC-2018449700

PATIENT
  Age: 63 Year
  Sex: Female

DRUGS (6)
  1. XELJANZ [Suspect]
     Active Substance: TOFACITINIB CITRATE
     Indication: ARTHRITIS
     Dosage: 5 MG, 1X/DAY (ONCE A DAY)
  2. CYMBALTA [Concomitant]
     Active Substance: DULOXETINE HYDROCHLORIDE
     Indication: DEPRESSION
  3. XELJANZ [Suspect]
     Active Substance: TOFACITINIB CITRATE
     Indication: PSORIATIC ARTHROPATHY
     Dosage: 5 MG, 2X/DAY
     Dates: start: 20180911
  4. XELJANZ [Suspect]
     Active Substance: TOFACITINIB CITRATE
     Dosage: 5 MG, DAILY (PRESCRIBED 5 MG PO Q(EVERY) DAY)
     Route: 048
  5. CYMBALTA [Concomitant]
     Active Substance: DULOXETINE HYDROCHLORIDE
     Indication: PAIN
  6. ARAVA [Concomitant]
     Active Substance: LEFLUNOMIDE
     Indication: ARTHROPATHY

REACTIONS (14)
  - Neuralgia [Unknown]
  - Craniocerebral injury [Unknown]
  - Therapeutic product effect incomplete [Unknown]
  - Pruritus [Unknown]
  - Colitis microscopic [Unknown]
  - Pain in extremity [Unknown]
  - Renal disorder [Unknown]
  - Parosmia [Unknown]
  - Pain [Unknown]
  - Memory impairment [Unknown]
  - Burning sensation [Unknown]
  - Weight increased [Unknown]
  - Circumstance or information capable of leading to medication error [Unknown]
  - Wrong dose [Unknown]
